FAERS Safety Report 9160101 (Version 3)
Quarter: 2013Q3

REPORT INFORMATION
  Report Type: Spontaneous
  Country: FR (occurrence: FR)
  Receive Date: 20130313
  Receipt Date: 20130926
  Transmission Date: 20140515
  Serious: Yes (Other)
  Sender: FDA-Public Use
  Company Number: FR-JNJFOC-20130302766

PATIENT
  Age: 45 Year
  Sex: Male

DRUGS (12)
  1. XARELTO [Suspect]
     Indication: CEREBROVASCULAR ACCIDENT PROPHYLAXIS
     Route: 048
     Dates: start: 20130125
  2. XARELTO [Suspect]
     Indication: ATRIAL FIBRILLATION
     Route: 048
     Dates: start: 20130125
  3. TAHOR [Concomitant]
     Route: 065
     Dates: start: 20130125
  4. PROCORALAN [Concomitant]
     Route: 065
     Dates: start: 20130125
  5. INEXIUM [Concomitant]
     Route: 065
  6. DIFFU K [Concomitant]
     Route: 065
  7. COVERSYL [Concomitant]
     Route: 065
  8. IMOVANE [Concomitant]
     Route: 065
  9. ATARAX [Concomitant]
     Route: 065
  10. CARDENSIEL [Concomitant]
     Route: 065
     Dates: start: 20130125
  11. LASILIX [Concomitant]
     Route: 065
  12. PROZAC [Concomitant]
     Route: 065
     Dates: start: 20130125

REACTIONS (7)
  - Blood alkaline phosphatase increased [Unknown]
  - Alanine aminotransferase increased [Recovered/Resolved]
  - Gamma-glutamyltransferase increased [Unknown]
  - Aspartate aminotransferase increased [Recovered/Resolved]
  - Nausea [Recovered/Resolved]
  - Fatigue [Unknown]
  - Vomiting [Recovered/Resolved]
